FAERS Safety Report 17426226 (Version 1)
Quarter: 2020Q1

REPORT INFORMATION
  Report Type: Spontaneous
  Country: FR (occurrence: FR)
  Receive Date: 20200218
  Receipt Date: 20200218
  Transmission Date: 20200409
  Serious: Yes (Hospitalization)
  Sender: FDA-Public Use
  Company Number: FR-ZYDUS-022007

PATIENT
  Age: 75 Year
  Sex: Female

DRUGS (7)
  1. LERCAN [Concomitant]
     Active Substance: LERCANIDIPINE
     Dosage: ()
     Route: 048
  2. LASILIX [Concomitant]
     Active Substance: FUROSEMIDE
     Route: 048
  3. LANTUS [Concomitant]
     Active Substance: INSULIN GLARGINE
     Route: 058
  4. NOVORAPID [Concomitant]
     Active Substance: INSULIN ASPART
     Route: 058
  5. ALLOPURINOL. [Suspect]
     Active Substance: ALLOPURINOL
     Indication: HYPERURICAEMIA
     Route: 048
     Dates: start: 20170612, end: 20170623
  6. KARDEGIC [Concomitant]
     Active Substance: ASPIRIN DL-LYSINE
     Route: 048
  7. TAHOR [Concomitant]
     Active Substance: ATORVASTATIN CALCIUM
     Route: 048

REACTIONS (3)
  - Photosensitivity reaction [Recovered/Resolved]
  - Purpura [Recovered/Resolved]
  - Generalised oedema [Recovered/Resolved]

NARRATIVE: CASE EVENT DATE: 20170623
